FAERS Safety Report 10069553 (Version 2)
Quarter: 2014Q2

REPORT INFORMATION
  Report Type: Spontaneous
  Country: US (occurrence: US)
  Receive Date: 20140410
  Receipt Date: 20140411
  Transmission Date: 20141212
  Serious: No
  Sender: FDA-Public Use
  Company Number: US-BIOGENIDEC-2014BI033420

PATIENT
  Age: 48 Year
  Sex: Female
  Weight: 73 kg

DRUGS (8)
  1. TYSABRI [Suspect]
     Indication: MULTIPLE SCLEROSIS
     Route: 042
     Dates: start: 20110901, end: 20120621
  2. TYSABRI [Suspect]
     Indication: MULTIPLE SCLEROSIS
     Route: 042
     Dates: start: 20121005, end: 20121206
  3. AVONEX [Concomitant]
     Indication: MULTIPLE SCLEROSIS
     Route: 030
  4. AVONEX [Concomitant]
     Indication: MULTIPLE SCLEROSIS
     Route: 030
     Dates: start: 20010801
  5. GILENYA [Concomitant]
  6. GABAPENTIN [Concomitant]
  7. GABAPENTIN [Concomitant]
  8. HYAZIDE [Concomitant]

REACTIONS (4)
  - Hyporeflexia [Unknown]
  - Extensor plantar response [Unknown]
  - Weight increased [Recovered/Resolved]
  - Stress [Unknown]
